FAERS Safety Report 23916844 (Version 2)
Quarter: 2024Q2

REPORT INFORMATION
  Report Type: Spontaneous
  Country: JP (occurrence: JP)
  Receive Date: 20240529
  Receipt Date: 20240617
  Transmission Date: 20240716
  Serious: Yes (Other)
  Sender: FDA-Public Use
  Company Number: JP-DAIICHI SANKYO, INC.-DSJ-2024-122997

PATIENT
  Age: 52 Year
  Sex: Female

DRUGS (11)
  1. VANFLYTA [Suspect]
     Active Substance: QUIZARTINIB DIHYDROCHLORIDE
     Indication: Acute myeloid leukaemia
     Dosage: 35.4MG/DAY
     Route: 065
     Dates: start: 202312
  2. VANFLYTA [Suspect]
     Active Substance: QUIZARTINIB DIHYDROCHLORIDE
     Dosage: 35.4MG/DAY
     Route: 065
     Dates: start: 202401
  3. VANFLYTA [Suspect]
     Active Substance: QUIZARTINIB DIHYDROCHLORIDE
     Dosage: UNK
     Route: 065
     Dates: start: 202403
  4. VANFLYTA [Suspect]
     Active Substance: QUIZARTINIB DIHYDROCHLORIDE
     Dosage: 35.4MG/DAY
     Route: 065
     Dates: start: 202404
  5. VANFLYTA [Suspect]
     Active Substance: QUIZARTINIB DIHYDROCHLORIDE
     Dosage: 53MG/DAY
     Route: 065
     Dates: start: 20240508
  6. CYTARABINE [Suspect]
     Active Substance: CYTARABINE
     Indication: Acute myeloid leukaemia
     Dosage: 3 G/M2
     Route: 065
     Dates: start: 20231215
  7. CYTARABINE [Suspect]
     Active Substance: CYTARABINE
     Dosage: 3 G/M2
     Route: 065
     Dates: start: 20240114
  8. CYTARABINE [Suspect]
     Active Substance: CYTARABINE
     Dosage: 3 G/M2
     Route: 065
     Dates: start: 20240229
  9. CYTARABINE [Suspect]
     Active Substance: CYTARABINE
     Dosage: 3 G/M2
     Route: 065
     Dates: start: 20240409
  10. FLUCONAZOLE [Concomitant]
     Active Substance: FLUCONAZOLE
     Indication: Product used for unknown indication
     Dosage: UNK
     Route: 065
  11. GRANULOCYTE COLONY-STIMULATING FACTOR NOS [Concomitant]
     Active Substance: GRANULOCYTE COLONY-STIMULATING FACTOR NOS
     Indication: Product used for unknown indication
     Dosage: UNK
     Route: 065

REACTIONS (2)
  - Haematotoxicity [Recovered/Resolved]
  - Febrile neutropenia [Recovered/Resolved]

NARRATIVE: CASE EVENT DATE: 20240101
